FAERS Safety Report 5451345-8 (Version None)
Quarter: 2007Q3

REPORT INFORMATION
  Report Type: 
  Country: None (occurrence: None)
  Receive Date: 20070913
  Receipt Date: 20070910
  Transmission Date: 20080115
  Serious: Yes (Death)
  Sender: FDA-Public Use
  Company Number: GB-ASTRAZENECA-2007AC01675

PATIENT
  Age: 31 Year
  Sex: Female

DRUGS (1)
  1. LIGNOCAINE [Suspect]
     Route: 042

REACTIONS (2)
  - COMPLETED SUICIDE [None]
  - OVERDOSE [None]
